FAERS Safety Report 13703714 (Version 3)
Quarter: 2017Q4

REPORT INFORMATION
  Report Type: Report from Study
  Country: US (occurrence: US)
  Receive Date: 20170629
  Receipt Date: 20171031
  Transmission Date: 20180320
  Serious: Yes (Hospitalization)
  Sender: FDA-Public Use
  Company Number: US-VIFOR (INTERNATIONAL) INC.-VIT-2017-06992

PATIENT
  Age: 65 Year
  Sex: Male
  Weight: 108.96 kg

DRUGS (23)
  1. VELTASSA [Suspect]
     Active Substance: PATIROMER
     Indication: HYPERKALAEMIA
     Route: 048
     Dates: start: 20170404
  2. VICTOZA [Concomitant]
     Active Substance: LIRAGLUTIDE
  3. CYANOCOBALAMIN. [Concomitant]
     Active Substance: CYANOCOBALAMIN
  4. NOVOLOG [Concomitant]
     Active Substance: INSULIN ASPART
  5. FLUTICASONE. [Concomitant]
     Active Substance: FLUTICASONE
  6. MELOXICAM. [Concomitant]
     Active Substance: MELOXICAM
  7. NITROGLYCERIN. [Concomitant]
     Active Substance: NITROGLYCERIN
  8. RANEXA [Concomitant]
     Active Substance: RANOLAZINE
  9. COLECALCIFEROL [Concomitant]
     Active Substance: CHOLECALCIFEROL
  10. GABAPENTIN. [Concomitant]
     Active Substance: GABAPENTIN
  11. SODIUM BICARBONATE. [Concomitant]
     Active Substance: SODIUM BICARBONATE
  12. FUROSEMIDE. [Concomitant]
     Active Substance: FUROSEMIDE
  13. ALLOPURINOL. [Concomitant]
     Active Substance: ALLOPURINOL
  14. ANDROGEL [Concomitant]
     Active Substance: TESTOSTERONE
  15. ACETYLSALICYLIC ACID [Concomitant]
     Active Substance: ASPIRIN
  16. COQ10 [Concomitant]
     Active Substance: UBIDECARENONE
  17. CARVEDILOL. [Concomitant]
     Active Substance: CARVEDILOL
  18. TRICOR [Concomitant]
     Active Substance: FENOFIBRATE
  19. BENICAR [Concomitant]
     Active Substance: OLMESARTAN MEDOXOMIL
  20. DEXILANT [Concomitant]
     Active Substance: DEXLANSOPRAZOLE
  21. EFFIENT [Concomitant]
     Active Substance: PRASUGREL HYDROCHLORIDE
  22. LEVEMIR [Concomitant]
     Active Substance: INSULIN DETEMIR
  23. LOVAZA [Concomitant]
     Active Substance: OMEGA-3-ACID ETHYL ESTERS

REACTIONS (8)
  - Dehydration [Recovering/Resolving]
  - Postoperative wound infection [Recovering/Resolving]
  - Constipation [Recovering/Resolving]
  - Bowel movement irregularity [Recovering/Resolving]
  - Malaise [Recovering/Resolving]
  - Nausea [Recovering/Resolving]
  - Drug dose omission [Not Recovered/Not Resolved]
  - Coronary artery occlusion [Recovering/Resolving]

NARRATIVE: CASE EVENT DATE: 2017
